FAERS Safety Report 9113008 (Version 1)
Quarter: 2013Q1

REPORT INFORMATION
  Report Type: Spontaneous
  Country: DK (occurrence: DK)
  Receive Date: 20130211
  Receipt Date: 20130211
  Transmission Date: 20140127
  Serious: Yes (Disabling)
  Sender: FDA-Public Use
  Company Number: DK-PFIZER INC-2013052047

PATIENT
  Age: 38 Year
  Sex: Male
  Weight: 69 kg

DRUGS (1)
  1. DEPO-MEDROL [Suspect]
     Indication: TENDONITIS
     Dosage: DOSE UNKNOWN, STRENGTH: 40 MG/ML
     Dates: start: 20110610, end: 20120110

REACTIONS (1)
  - Chorioretinopathy [Not Recovered/Not Resolved]
